FAERS Safety Report 10100263 (Version 1)
Quarter: 2014Q2

REPORT INFORMATION
  Report Type: Spontaneous
  Country: US (occurrence: US)
  Receive Date: 20140423
  Receipt Date: 20140423
  Transmission Date: 20141212
  Serious: No
  Sender: FDA-Public Use
  Company Number: US-GILEAD-2013-0077108

PATIENT
  Age: 49 Year
  Sex: Female

DRUGS (10)
  1. LETAIRIS [Suspect]
     Indication: PULMONARY HYPERTENSION
     Dosage: 10 MG, QD
     Route: 048
     Dates: start: 201210, end: 201303
  2. LETAIRIS [Suspect]
     Dosage: 5 MG, QD
     Route: 048
     Dates: start: 201209, end: 201210
  3. REVATIO [Concomitant]
     Dosage: UNK
  4. DIGOXIN [Concomitant]
  5. NORETHINDRONE ACETATE [Concomitant]
  6. VICODIN [Concomitant]
  7. COZAAR [Concomitant]
  8. HYDROCHLOROTHIAZIDE [Concomitant]
  9. PEPCID                             /00706001/ [Concomitant]
  10. QVAR [Concomitant]

REACTIONS (1)
  - Migraine [Recovered/Resolved]
